FAERS Safety Report 10270940 (Version 2)
Quarter: 2014Q3

REPORT INFORMATION
  Report Type: Report from Study
  Country: JP (occurrence: JP)
  Receive Date: 20140701
  Receipt Date: 20140804
  Transmission Date: 20150326
  Serious: Yes (Life-Threatening, Hospitalization, Other)
  Sender: FDA-Public Use
  Company Number: JP-ACTELION-A-CH2014-101059

PATIENT
  Age: 30 Year
  Sex: Female
  Weight: 57.2 kg

DRUGS (14)
  1. SPIRONOLACTONE. [Concomitant]
     Active Substance: SPIRONOLACTONE
  2. EPOPROSTENOL SODIUM. [Concomitant]
     Active Substance: EPOPROSTENOL SODIUM
  3. FLOLAN [Concomitant]
     Active Substance: EPOPROSTENOL SODIUM
  4. SILDENAFIL CITRATE. [Concomitant]
     Active Substance: SILDENAFIL CITRATE
  5. DIGOXIN. [Concomitant]
     Active Substance: DIGOXIN
  6. BERAPROST SODIUM [Suspect]
     Active Substance: BERAPROST SODIUM
     Dosage: 120 ?G, UNK
     Route: 048
     Dates: start: 20090511, end: 20090607
  7. FUROSEMIDE. [Concomitant]
     Active Substance: FUROSEMIDE
  8. ETIZOLAM [Concomitant]
     Active Substance: ETIZOLAM
  9. OXYGEN. [Concomitant]
     Active Substance: OXYGEN
  10. TRACLEER [Suspect]
     Active Substance: BOSENTAN\BOSENTAN MONOHYDRATE
     Indication: PULMONARY ARTERIAL HYPERTENSION
     Dosage: 125 MG, BID
     Route: 048
     Dates: start: 20090507
  11. BERAPROST SODIUM [Suspect]
     Active Substance: BERAPROST SODIUM
     Dosage: 360 ?G, UNK
     Route: 048
     Dates: start: 20090608, end: 20090705
  12. BROTIZOLAM [Concomitant]
     Active Substance: BROTIZOLAM
  13. BERAPROST SODIUM [Suspect]
     Active Substance: BERAPROST SODIUM
     Dosage: 240 ?G, UNK
     Route: 048
     Dates: start: 20090706, end: 20091014
  14. WARFARIN POTASSIUM [Concomitant]
     Active Substance: WARFARIN POTASSIUM

REACTIONS (5)
  - Device related infection [Recovering/Resolving]
  - Decreased appetite [Recovering/Resolving]
  - Headache [Recovered/Resolved]
  - Pregnancy [Recovered/Resolved]
  - Abortion induced [Recovered/Resolved]

NARRATIVE: CASE EVENT DATE: 200906
